FAERS Safety Report 7323844-5 (Version None)
Quarter: 2011Q1

REPORT INFORMATION
  Report Type: 
  Country: None (occurrence: None)
  Receive Date: 20110301
  Receipt Date: 20110221
  Transmission Date: 20110831
  Serious: Yes (Other)
  Sender: FDA-Public Use
  Company Number: A0914662A

PATIENT
  Age: 92 Year
  Sex: Male

DRUGS (9)
  1. PRILOSEC [Suspect]
     Route: 065
  2. ACETAMINOPHEN [Suspect]
     Route: 065
  3. LISINOPRIL [Suspect]
     Route: 065
  4. LIPITOR [Suspect]
     Route: 065
  5. AVODART [Suspect]
     Indication: BENIGN PROSTATIC HYPERPLASIA
     Dosage: 1CAP WEEKLY
     Route: 048
  6. HYDROCHLOROTHIAZIDE [Suspect]
     Route: 065
  7. CARVEDILOL [Suspect]
     Route: 065
  8. FLOMAX [Suspect]
     Route: 065
  9. ASPIRIN [Suspect]
     Route: 065

REACTIONS (3)
  - DIZZINESS [None]
  - SYNCOPE [None]
  - INAPPROPRIATE SCHEDULE OF DRUG ADMINISTRATION [None]
